FAERS Safety Report 12556876 (Version 3)
Quarter: 2016Q3

REPORT INFORMATION
  Report Type: Spontaneous
  Country: JP (occurrence: JP)
  Receive Date: 20160714
  Receipt Date: 20160824
  Transmission Date: 20161109
  Serious: Yes (Other)
  Sender: FDA-Public Use
  Company Number: JP-009507513-1607JPN006021

PATIENT
  Sex: Male

DRUGS (2)
  1. REBETOL [Suspect]
     Active Substance: RIBAVIRIN
     Indication: CHRONIC HEPATITIS C
     Dosage: DAILY DOSE UNKNOWN
     Route: 048
  2. SOVALDI [Suspect]
     Active Substance: SOFOSBUVIR
     Indication: CHRONIC HEPATITIS C
     Dosage: DAILY DOSE UNKNOWN
     Route: 048
     Dates: start: 201510, end: 201512

REACTIONS (2)
  - Infection reactivation [Not Recovered/Not Resolved]
  - Hepatic cancer recurrent [Unknown]

NARRATIVE: CASE EVENT DATE: 201601
